FAERS Safety Report 12295946 (Version 2)
Quarter: 2016Q2

REPORT INFORMATION
  Report Type: Report from Study
  Country: HU (occurrence: HU)
  Receive Date: 20160422
  Receipt Date: 20160503
  Transmission Date: 20160815
  Serious: Yes (Death, Other)
  Sender: FDA-Public Use
  Company Number: HU-ABBVIE-16P-076-1608402-00

PATIENT
  Age: 59 Year
  Sex: Male
  Weight: 65 kg

DRUGS (4)
  1. STALEVO [Concomitant]
     Active Substance: CARBIDOPA\ENTACAPONE\LEVODOPA
     Indication: PRODUCT USED FOR UNKNOWN INDICATION
     Route: 048
  2. DUODOPA [Suspect]
     Active Substance: CARBIDOPA\LEVODOPA
     Indication: PARKINSON^S DISEASE
     Dosage: MORNING DOSE: 8ML; CONTINUOUS DOSE: 3.7ML/H; EXTRA DOSE?: 2ML
     Route: 050
     Dates: start: 20140522, end: 20160402
  3. FRONTIN [Concomitant]
     Active Substance: ALPRAZOLAM
     Indication: SEDATIVE THERAPY
     Dosage: 0.25MG IN THE MORNING, 0.25 MG AT NOON, 0.5 MG AT THE EVENING
     Route: 048
  4. PENTOXIFYLLIN [Concomitant]
     Active Substance: PENTOXIFYLLINE
     Indication: VASOCONSTRICTION
     Dates: start: 2013

REACTIONS (4)
  - Device dislocation [Unknown]
  - Parkinsonism [Fatal]
  - Pyrexia [Fatal]
  - General physical health deterioration [Unknown]

NARRATIVE: CASE EVENT DATE: 20160402
